FAERS Safety Report 9617526 (Version 2)
Quarter: 2013Q4

REPORT INFORMATION
  Report Type: Report from Study
  Country: RO (occurrence: RO)
  Receive Date: 20131011
  Receipt Date: 20131025
  Transmission Date: 20140711
  Serious: Yes (Death)
  Sender: FDA-Public Use
  Company Number: RO-GLAXOSMITHKLINE-B0927346A

PATIENT
  Sex: Male
  Weight: 82 kg

DRUGS (11)
  1. FLUTICASONE FUROATE [Suspect]
     Indication: CHRONIC OBSTRUCTIVE PULMONARY DISEASE
     Dates: start: 20120313, end: 20130910
  2. SPIRIVA [Concomitant]
     Indication: CHRONIC OBSTRUCTIVE PULMONARY DISEASE
     Dosage: 18MCG PER DAY
     Route: 055
     Dates: start: 2008, end: 20120227
  3. IBUPROFEN [Concomitant]
     Indication: ARTHRALGIA
     Dosage: 200MG TWICE PER DAY
     Route: 048
     Dates: start: 20120520, end: 20130528
  4. IPRATROPIUM [Concomitant]
     Indication: CHRONIC OBSTRUCTIVE PULMONARY DISEASE
     Route: 055
     Dates: start: 20120227, end: 20120312
  5. ENALAPRIL [Concomitant]
     Indication: HYPERTENSION
     Dosage: 10MG TWICE PER DAY
     Route: 048
     Dates: start: 20120116
  6. ISODINIT [Concomitant]
     Indication: LEFT VENTRICULAR FAILURE
     Dosage: 10MG TWICE PER DAY
     Route: 048
     Dates: start: 20120116
  7. ASPENTER [Concomitant]
     Indication: LEFT VENTRICULAR FAILURE
     Dosage: 75MG PER DAY
     Route: 048
     Dates: start: 20120116
  8. DIUREX [Concomitant]
     Indication: LEFT VENTRICULAR FAILURE
     Route: 048
     Dates: start: 20120116
  9. ATORVASTATIN [Concomitant]
     Indication: LEFT VENTRICULAR FAILURE
     Dosage: 20MG PER DAY
     Route: 048
     Dates: start: 20120116
  10. NITROGLYCERIN [Concomitant]
     Indication: LEFT VENTRICULAR FAILURE
     Route: 060
     Dates: start: 20120116
  11. ALGOCALMIN [Concomitant]
     Indication: HEADACHE
     Route: 048
     Dates: start: 20130410, end: 20130417

REACTIONS (1)
  - Bronchopneumonia [Fatal]
